FAERS Safety Report 24742917 (Version 1)
Quarter: 2024Q4

REPORT INFORMATION
  Report Type: Spontaneous
  Country: AT (occurrence: AT)
  Receive Date: 20241217
  Receipt Date: 20241217
  Transmission Date: 20250115
  Serious: Yes (Disabling)
  Sender: JOHNSON AND JOHNSON
  Company Number: AT-GEN-2024-2263

PATIENT
  Age: 63 Year
  Sex: Male

DRUGS (2)
  1. RISPERDAL [Suspect]
     Active Substance: RISPERIDONE
     Indication: Aggression
     Dosage: 3 X 1 MG T?GLICH (1X 1 MG MORGENS, 2 X 1 MG ABENDS) (3 X 1 MG DAILY (1X 1 MG IN THE MORNING, 2 X 1 M
     Route: 048
     Dates: start: 202409
  2. Sleeping remedy [Concomitant]
     Indication: Product used for unknown indication
     Dosage: SEIT SEPTEMBER 2024 JEDEN ABEND, SCHLAFMITTEL VERABREICHT (SINCE SEPTEMBER 2024 EVERY EVENING, SLEEP
     Dates: start: 202409

REACTIONS (5)
  - Off label use [Not Recovered/Not Resolved]
  - Aphasia [Not Recovered/Not Resolved]
  - Oculogyric crisis [Not Recovered/Not Resolved]
  - Tremor [Not Recovered/Not Resolved]
  - Gait disturbance [Not Recovered/Not Resolved]
